FAERS Safety Report 21236064 (Version 1)
Quarter: 2022Q3

REPORT INFORMATION
  Report Type: Spontaneous
  Country: US (occurrence: US)
  Receive Date: 20220822
  Receipt Date: 20220822
  Transmission Date: 20221027
  Serious: Yes (Other)
  Sender: FDA-Public Use
  Company Number: US-BRISTOL-MYERS SQUIBB COMPANY-2022-092718

PATIENT
  Age: 45 Year
  Sex: Male

DRUGS (1)
  1. ABRAXANE [Suspect]
     Active Substance: PACLITAXEL
     Indication: Lung neoplasm malignant
     Dosage: FREQUENCY: DAY 1 AND 15 EVERY 28 DAYS, ROUTE OF ADMINISTRATION: INFUSION
     Route: 065
     Dates: end: 20220121

REACTIONS (2)
  - Drug ineffective [Unknown]
  - Off label use [Unknown]
